FAERS Safety Report 13241210 (Version 1)
Quarter: 2017Q1

REPORT INFORMATION
  Report Type: Spontaneous
  Country: US (occurrence: US)
  Receive Date: 20170216
  Receipt Date: 20170216
  Transmission Date: 20170428
  Serious: No
  Sender: FDA-Public Use
  Company Number: US-CELGENEUS-USA-2017021930

PATIENT
  Sex: Female

DRUGS (1)
  1. OTEZLA [Suspect]
     Active Substance: APREMILAST
     Indication: PSORIASIS
     Route: 048
     Dates: start: 20160726

REACTIONS (5)
  - Tremor [Unknown]
  - Diarrhoea [Unknown]
  - Nervousness [Unknown]
  - Abdominal pain upper [Unknown]
  - Psoriasis [Unknown]
